FAERS Safety Report 4517074-X (Version None)
Quarter: 2004Q4

REPORT INFORMATION
  Report Type: 
  Country: None (occurrence: None)
  Receive Date: 20041130
  Receipt Date: 20041117
  Transmission Date: 20050328
  Serious: Yes (Death, Life-Threatening, Hospitalization)
  Sender: FDA-Public Use
  Company Number: 2004094871

PATIENT
  Age: 43 Year
  Sex: Female

DRUGS (8)
  1. FLUCONAZOLE [Suspect]
     Indication: FUNGAL INFECTION
     Dosage: ORAL
     Route: 048
     Dates: start: 20040105, end: 20040114
  2. CEFEPIME (CEFEPIME) [Suspect]
     Indication: SEPTIC SHOCK
     Dosage: 2 GRAM (1 GRAM, 1 IN 1D), INTRAVENOUS
     Route: 042
     Dates: start: 20040114, end: 20040118
  3. CIPROFLOXACIN [Suspect]
     Indication: SEPTIC SHOCK
     Dosage: 400 MG (1 IN 1D), INTRAVENOUS
     Route: 042
     Dates: start: 20040114, end: 20040117
  4. MIDAZOLAM HCL [Concomitant]
  5. SUFENTANIL CITRATE [Concomitant]
  6. NOREPINEPHRINE (NOREPINEPHRINE) [Concomitant]
  7. CISATRACURIUM BESILATE (CISATRACURIUM BESILATE) [Concomitant]
  8. HYDROCORTISONE [Concomitant]

REACTIONS (3)
  - MULTI-ORGAN FAILURE [None]
  - SEPTIC SHOCK [None]
  - TOXIC EPIDERMAL NECROLYSIS [None]
